FAERS Safety Report 5751467-8 (Version None)
Quarter: 2008Q2

REPORT INFORMATION
  Report Type: 
  Country: None (occurrence: None)
  Receive Date: 20080528
  Receipt Date: 20080514
  Transmission Date: 20081010
  Serious: Yes (Other)
  Sender: FDA-Public Use
  Company Number: PHHO2006GB15545

PATIENT
  Sex: Female
  Weight: 56.4 kg

DRUGS (1)
  1. ZOLEDRONIC ACID [Suspect]
     Indication: METASTASES TO BONE
     Dosage: 4 MG, UNK
     Route: 042
     Dates: start: 20050622, end: 20060531

REACTIONS (16)
  - ABSCESS [None]
  - BONE FORMATION DECREASED [None]
  - DYSPLASIA [None]
  - ERYTHEMA [None]
  - EXCESSIVE GRANULATION TISSUE [None]
  - GINGIVAL INFECTION [None]
  - GINGIVAL RECESSION [None]
  - ORAL SURGERY [None]
  - OSTEONECROSIS [None]
  - PAIN [None]
  - PARAKERATOSIS [None]
  - PERIODONTAL DISEASE [None]
  - PURULENT DISCHARGE [None]
  - TONGUE DISCOLOURATION [None]
  - TOOTH DISORDER [None]
  - TOOTH EXTRACTION [None]
